FAERS Safety Report 18461634 (Version 1)
Quarter: 2020Q4

REPORT INFORMATION
  Report Type: Spontaneous
  Country: US (occurrence: US)
  Receive Date: 20201103
  Receipt Date: 20201103
  Transmission Date: 20210114
  Serious: No
  Sender: FDA-Public Use
  Company Number: None

PATIENT

DRUGS (1)
  1. NATURAL TEARS [Suspect]
     Active Substance: POLYVINYL ALCOHOL\POVIDONE

REACTIONS (1)
  - Drug ineffective [None]
